FAERS Safety Report 8160268 (Version 2)
Quarter: 2013Q2

REPORT INFORMATION
  Report Type: Spontaneous
  Country: NL (occurrence: NL)
  Receive Date: 20110928
  Receipt Date: 20130429
  Transmission Date: 20140414
  Serious: Yes (Death, Other)
  Sender: FDA-Public Use
  Company Number: NL-CELGENEUS-114-20785-11092111

PATIENT
  Sex: 0

DRUGS (5)
  1. THALIDOMIDE [Suspect]
     Indication: MESOTHELIOMA MALIGNANT
     Dosage: 200 MILLIGRAM
     Route: 048
  2. THALIDOMIDE [Suspect]
     Dosage: 100 MILLIGRAM
     Route: 048
  3. PEMETREXED [Concomitant]
     Indication: PRODUCT USED FOR UNKNOWN INDICATION
     Route: 065
  4. CARBOPLATIN [Concomitant]
     Indication: PRODUCT USED FOR UNKNOWN INDICATION
     Dosage: AUC 5
     Route: 065
  5. CISPLATIN [Concomitant]
     Indication: PRODUCT USED FOR UNKNOWN INDICATION
     Route: 065

REACTIONS (12)
  - Death [Fatal]
  - Cardiovascular disorder [Unknown]
  - Thrombocytopenia [Unknown]
  - Embolism [Unknown]
  - Anaemia [Unknown]
  - Leukopenia [Unknown]
  - Neutropenia [Unknown]
  - Constipation [Unknown]
  - Neuropathy peripheral [Unknown]
  - Disease progression [Unknown]
  - Peripheral sensory neuropathy [Unknown]
  - Fatigue [Unknown]
